FAERS Safety Report 23940821 (Version 1)
Quarter: 2024Q2

REPORT INFORMATION
  Report Type: Other
  Country: CA (occurrence: None)
  Receive Date: 20240605
  Receipt Date: 20240605
  Transmission Date: 20240715
  Serious: Yes (Death)
  Sender: FDA-Public Use
  Company Number: CA-ROCHE-2431802

PATIENT
  Sex: Male

DRUGS (4)
  1. RITUXAN [Suspect]
     Active Substance: RITUXIMAB
     Indication: Aortitis
     Dosage: ONGOING
     Route: 041
     Dates: start: 20190123, end: 20190212
  2. BENADRYL [Concomitant]
     Active Substance: DIPHENHYDRAMINE HYDROCHLORIDE
     Indication: Premedication
     Dosage: ONGOING
     Route: 048
     Dates: start: 20190123
  3. SOLU-MEDROL [Concomitant]
     Active Substance: METHYLPREDNISOLONE SODIUM SUCCINATE
     Indication: Premedication
     Dosage: ONGOING
     Route: 042
     Dates: start: 20190123
  4. TYLENOL [Concomitant]
     Active Substance: ACETAMINOPHEN
     Indication: Premedication
     Dosage: ONGOING
     Route: 048
     Dates: start: 20190123

REACTIONS (3)
  - Haematological infection [Fatal]
  - Off label use [Fatal]
  - Multiple organ dysfunction syndrome [Fatal]
